FAERS Safety Report 5005196-9 (Version None)
Quarter: 2006Q2

REPORT INFORMATION
  Report Type: 
  Country: None (occurrence: None)
  Receive Date: 20060518
  Receipt Date: 20060510
  Transmission Date: 20061013
  Serious: No
  Sender: FDA-Public Use
  Company Number: 2006AP02188

PATIENT
  Age: 35 Year
  Sex: Female

DRUGS (2)
  1. SEROQUEL [Suspect]
     Route: 048
     Dates: start: 20060118, end: 20060226
  2. SEROQUEL [Suspect]
     Route: 048
     Dates: start: 20060227

REACTIONS (1)
  - WHITE BLOOD CELL COUNT DECREASED [None]
